FAERS Safety Report 4835613-6 (Version None)
Quarter: 2005Q4

REPORT INFORMATION
  Report Type: 
  Country: None (occurrence: None)
  Receive Date: 20051121
  Receipt Date: 20051115
  Transmission Date: 20060501
  Serious: Yes (Other)
  Sender: FDA-Public Use
  Company Number: 200513922GDS

PATIENT
  Age: 39 Year

DRUGS (1)
  1. AVELOX [Suspect]

REACTIONS (1)
  - DEPRESSION SUICIDAL [None]
